FAERS Safety Report 19456416 (Version 2)
Quarter: 2021Q2

REPORT INFORMATION
  Report Type: Spontaneous
  Country: JP (occurrence: JP)
  Receive Date: 20210624
  Receipt Date: 20210625
  Transmission Date: 20210717
  Serious: Yes (Death, Hospitalization)
  Sender: FDA-Public Use
  Company Number: JP-TEVA-2021-JP-1924502

PATIENT
  Age: 84 Year
  Sex: Female

DRUGS (4)
  1. CARPERITIDE [Suspect]
     Active Substance: CARPERITIDE
     Indication: PLEURAL EFFUSION
     Route: 065
  2. METHOTREXATE. [Suspect]
     Active Substance: METHOTREXATE
     Indication: RHEUMATOID ARTHRITIS
     Dosage: 6?10MG
     Route: 065
  3. CELECOXIB. [Suspect]
     Active Substance: CELECOXIB
     Indication: RHEUMATOID ARTHRITIS
     Route: 065
  4. FUROSEMIDE. [Suspect]
     Active Substance: FUROSEMIDE
     Indication: PLEURAL EFFUSION
     Route: 065

REACTIONS (20)
  - Pleural effusion [Fatal]
  - Atelectasis [Unknown]
  - Cardiac failure [Fatal]
  - Cerebral infarction [Unknown]
  - Movement disorder [Not Recovered/Not Resolved]
  - Respiratory failure [Fatal]
  - Myocardial haemorrhage [Unknown]
  - Hypoproteinaemia [Fatal]
  - Malnutrition [Unknown]
  - Stomatitis [Unknown]
  - Drug ineffective [Fatal]
  - Speech disorder [Not Recovered/Not Resolved]
  - Asthenia [Fatal]
  - Dysphagia [Unknown]
  - Disseminated intravascular coagulation [Unknown]
  - Loss of consciousness [Unknown]
  - Gelatinous transformation of the bone marrow [Fatal]
  - Metabolic acidosis [Unknown]
  - Renal impairment [Unknown]
  - Haemophagocytic lymphohistiocytosis [Unknown]
